FAERS Safety Report 18750022 (Version 1)
Quarter: 2021Q1

REPORT INFORMATION
  Report Type: Spontaneous
  Country: US (occurrence: US)
  Receive Date: 20210118
  Receipt Date: 20210118
  Transmission Date: 20210419
  Serious: Yes (Other)
  Sender: FDA-Public Use
  Company Number: US-CONCORD BIOTECH LIMITED-CBL202101-000038

PATIENT
  Age: 2 Year
  Sex: Female

DRUGS (5)
  1. MYCOPHENOLATE MOFETIL. [Suspect]
     Active Substance: MYCOPHENOLATE MOFETIL
     Indication: IMMUNOSUPPRESSION
  2. ASPIRIN. [Concomitant]
     Active Substance: ASPIRIN
     Indication: RENAL ARTERY THROMBOSIS
  3. HEPARIN [Concomitant]
     Active Substance: HEPARIN SODIUM
     Indication: RENAL ARTERY THROMBOSIS
  4. THYMOGLOBULIN [Suspect]
     Active Substance: LAPINE T-LYMPHOCYTE IMMUNE GLOBULIN
     Indication: IMMUNOSUPPRESSION
  5. TACROLIMUS. [Suspect]
     Active Substance: TACROLIMUS
     Indication: IMMUNOSUPPRESSION

REACTIONS (3)
  - Hypertensive emergency [Not Recovered/Not Resolved]
  - Renal artery stenosis [Unknown]
  - Polyomavirus-associated nephropathy [Recovered/Resolved]
